FAERS Safety Report 15725268 (Version 2)
Quarter: 2018Q4

REPORT INFORMATION
  Report Type: Spontaneous
  Country: US (occurrence: US)
  Receive Date: 20181215
  Receipt Date: 20181224
  Transmission Date: 20190205
  Serious: No
  Sender: FDA-Public Use
  Company Number: US-UNITED THERAPEUTICS-UNT-2018-020695

PATIENT
  Sex: Male
  Weight: 90.7 kg

DRUGS (1)
  1. REMODULIN [Suspect]
     Active Substance: TREPROSTINIL
     Indication: PULMONARY ARTERIAL HYPERTENSION
     Dosage: 0.002 ?G/KG, CONTINUING
     Route: 058
     Dates: start: 20181116, end: 201812

REACTIONS (5)
  - Toothache [Unknown]
  - Headache [Unknown]
  - Infusion site pain [Unknown]
  - Pain in jaw [Unknown]
  - Drug intolerance [Not Recovered/Not Resolved]

NARRATIVE: CASE EVENT DATE: 2018
